FAERS Safety Report 23248523 (Version 1)
Quarter: 2023Q4

REPORT INFORMATION
  Report Type: Spontaneous
  Country: US (occurrence: US)
  Receive Date: 20231201
  Receipt Date: 20231201
  Transmission Date: 20240109
  Serious: Yes (Other)
  Sender: FDA-Public Use
  Company Number: US-drreddys-SPO/USA/23/0187562

PATIENT
  Age: 27 Year
  Sex: Female

DRUGS (4)
  1. TESTOSTERONE [Suspect]
     Active Substance: TESTOSTERONE
     Indication: Transgender hormonal therapy
  2. TESTOSTERONE [Suspect]
     Active Substance: TESTOSTERONE
  3. TESTOSTERONE [Suspect]
     Active Substance: TESTOSTERONE
  4. CABERGOLINE [Concomitant]
     Active Substance: CABERGOLINE
     Indication: Pituitary tumour benign
     Dosage: 5 MG TWICE WEEKLY

REACTIONS (1)
  - Hyperprolactinaemia [Unknown]
